FAERS Safety Report 8618845-0 (Version None)
Quarter: 2012Q3

REPORT INFORMATION
  Report Type: 
  Country: None (occurrence: None)
  Receive Date: 20120810
  Receipt Date: 20120726
  Transmission Date: 20120928
  Serious: Yes (Other)
  Sender: FDA-Public Use
  Company Number: TPA2012A00260

PATIENT
  Age: 52 Year
  Sex: Male
  Weight: 82.5547 kg

DRUGS (6)
  1. METFORMIN HCL [Concomitant]
  2. ACTOS [Suspect]
     Indication: TYPE 2 DIABETES MELLITUS
     Dosage: 15 MG, 30 MG
     Dates: start: 20110401, end: 20110801
  3. ACTOS [Suspect]
     Indication: TYPE 2 DIABETES MELLITUS
     Dosage: 15 MG, 30 MG
     Dates: start: 20070501, end: 20071201
  4. JANUMET [Concomitant]
  5. METFORMIN HYDROCHLORIDE [Concomitant]
  6. ACTOPLUS MET [Suspect]
     Indication: TYPE 2 DIABETES MELLITUS
     Dates: start: 20080501, end: 20100101

REACTIONS (1)
  - BLADDER TRANSITIONAL CELL CARCINOMA [None]
